FAERS Safety Report 9342679 (Version 1)
Quarter: 2013Q2

REPORT INFORMATION
  Report Type: Spontaneous
  Country: US (occurrence: None)
  Receive Date: 20130607
  Receipt Date: 20130607
  Transmission Date: 20140414
  Serious: Yes (Other)
  Sender: FDA-Public Use
  Company Number: US-SEPTODONT-201301208

PATIENT
  Age: 68 Year
  Sex: Female

DRUGS (1)
  1. LIDOCAINE HCL [Suspect]
     Indication: LOCAL ANAESTHESIA
     Route: 004
     Dates: start: 201305

REACTIONS (8)
  - Dyspnoea [None]
  - Tremor [None]
  - Hot flush [None]
  - Chest discomfort [None]
  - Dizziness [None]
  - Discomfort [None]
  - Blood pressure increased [None]
  - Heart rate increased [None]
